FAERS Safety Report 15798196 (Version 1)
Quarter: 2019Q1

REPORT INFORMATION
  Report Type: Spontaneous
  Country: US (occurrence: US)
  Receive Date: 20190108
  Receipt Date: 20190108
  Transmission Date: 20190417
  Serious: Yes (Death)
  Sender: FDA-Public Use
  Company Number: US-B.I. PHARMACEUTICALS,INC./RIDGEFIELD-2019-BI-000787

PATIENT
  Age: 74 Year
  Sex: Female

DRUGS (1)
  1. PRADAXA [Suspect]
     Active Substance: DABIGATRAN ETEXILATE MESYLATE
     Indication: ATRIAL FIBRILLATION
     Dosage: FORMULATION: CAPSULE; ? ACTION(S) TAKEN WITH PRODUCT: DOSE NOT CHANGED
     Route: 048

REACTIONS (3)
  - Death [Fatal]
  - Chronic obstructive pulmonary disease [Unknown]
  - Pneumonia [Unknown]

NARRATIVE: CASE EVENT DATE: 20181222
